FAERS Safety Report 11661510 (Version 2)
Quarter: 2015Q4

REPORT INFORMATION
  Report Type: Report from Study
  Country: JP (occurrence: JP)
  Receive Date: 20151026
  Receipt Date: 20151104
  Transmission Date: 20160304
  Serious: Yes (Other)
  Sender: FDA-Public Use
  Company Number: JP-SA-2015SA165059

PATIENT
  Age: 68 Year
  Sex: Male
  Weight: 64 kg

DRUGS (15)
  1. SOLYUGEN G [Concomitant]
     Dates: start: 20151006, end: 20151011
  2. TAS-118 [Suspect]
     Active Substance: INVESTIGATIONAL PRODUCT
     Indication: GASTRIC CANCER
     Dosage: FORM: GRANULE
     Route: 048
     Dates: start: 20150915, end: 20150922
  3. ALBUMIN [Concomitant]
     Active Substance: ALBUMIN (HUMAN)
     Dates: start: 20151008, end: 20151010
  4. CEFEPIME HYDROCHLORIDE. [Concomitant]
     Active Substance: CEFEPIME HYDROCHLORIDE
     Dates: start: 20151006, end: 20151011
  5. TAKEPRON [Concomitant]
     Active Substance: LANSOPRAZOLE
     Dates: start: 20151007, end: 20151012
  6. ELPLAT [Suspect]
     Active Substance: OXALIPLATIN
     Indication: GASTRIC CANCER
     Route: 041
     Dates: start: 20150929, end: 20150929
  7. VITAMEDIN [Concomitant]
     Active Substance: CYANOCOBALAMIN\PYRIDOXINE HYDROCHLORIDE\THIAMINE
     Dates: start: 20151006
  8. VITACIMIN [Concomitant]
     Dates: start: 20151006
  9. TAS-118 [Suspect]
     Active Substance: INVESTIGATIONAL PRODUCT
     Indication: GASTRIC CANCER
     Dosage: FORM: GRANULE
     Route: 048
     Dates: start: 20150929, end: 20151006
  10. FILGRASTIM [Concomitant]
     Active Substance: FILGRASTIM
     Dates: start: 20151006, end: 20151012
  11. OXIFAST [Concomitant]
     Active Substance: OXYCODONE
     Dates: start: 20151007, end: 20151013
  12. ELPLAT [Suspect]
     Active Substance: OXALIPLATIN
     Indication: GASTRIC CANCER
     Route: 041
     Dates: start: 20150915, end: 20150915
  13. CARBOHYDRATES NOS/SODIUM LACTATE/SODIUM CHLORIDE/POTASSIUM CHLORIDE [Concomitant]
     Dates: start: 20151010
  14. MEROPEN [Concomitant]
     Active Substance: MEROPENEM
     Dates: start: 20151011
  15. FUNGUARD [Concomitant]
     Active Substance: MICAFUNGIN SODIUM
     Dates: start: 20151011

REACTIONS (1)
  - Disseminated intravascular coagulation [Recovered/Resolved]

NARRATIVE: CASE EVENT DATE: 20151010
